FAERS Safety Report 24576421 (Version 1)
Quarter: 2024Q4

REPORT INFORMATION
  Report Type: Spontaneous
  Country: US (occurrence: US)
  Receive Date: 20241104
  Receipt Date: 20241104
  Transmission Date: 20250115
  Serious: No
  Sender: Harrow Health
  Company Number: US-IMP-2024000898

PATIENT
  Age: 77 Year
  Sex: Female

DRUGS (1)
  1. VEVYE [Suspect]
     Active Substance: CYCLOSPORINE
     Indication: Dry eye
     Dosage: ONE DROP TO BOTH EYES TWICE A DAY
     Route: 047
     Dates: start: 202409, end: 2024

REACTIONS (3)
  - Disease progression [Unknown]
  - Brain fog [Unknown]
  - Insomnia [Unknown]

NARRATIVE: CASE EVENT DATE: 20241001
